FAERS Safety Report 8985484 (Version 1)
Quarter: 2012Q4

REPORT INFORMATION
  Report Type: 
  Country: US (occurrence: US)
  Receive Date: 20121226
  Receipt Date: 20121226
  Transmission Date: 20130627
  Serious: Yes (Other)
  Sender: FDA-Public Use
  Company Number: US-SHIRE-ALL1-2012-06391

PATIENT
  Sex: Female

DRUGS (3)
  1. VYVANSE [Suspect]
     Indication: ATTENTION DEFICIT/HYPERACTIVITY DISORDER
     Dosage: 60 mg, 1x/day:qd
     Route: 048
     Dates: start: 2009, end: 201002
  2. VYVANSE [Suspect]
     Dosage: 60 mg, 1x/day:qd
     Route: 048
     Dates: start: 2010, end: 20121130
  3. VITAMIN D /00107901/ [Concomitant]
     Indication: VITAMIN D DECREASED
     Dosage: 100 mg, 1x/day:qd
     Route: 048
     Dates: start: 2008

REACTIONS (7)
  - Abortion spontaneous [Recovered/Resolved]
  - Weight fluctuation [Recovering/Resolving]
  - Panic attack [Recovered/Resolved]
  - Withdrawal syndrome [Not Recovered/Not Resolved]
  - Exposure during pregnancy [Recovered/Resolved]
  - Somnolence [Not Recovered/Not Resolved]
  - Drug dose omission [Not Recovered/Not Resolved]
